FAERS Safety Report 6426087-2 (Version None)
Quarter: 2009Q4

REPORT INFORMATION
  Report Type: 
  Country: None (occurrence: None)
  Receive Date: 20091103
  Receipt Date: 20091103
  Transmission Date: 20100525
  Serious: Yes (Hospitalization)
  Sender: FDA-Public Use
  Company Number: None

PATIENT
  Age: 24 Year
  Sex: Male
  Weight: 87.9978 kg

DRUGS (1)
  1. TYSABRI [Suspect]
     Indication: MULTIPLE SCLEROSIS
     Dosage: 300 MG Q4WKS I.V.
     Route: 042
     Dates: start: 20061101, end: 20091027

REACTIONS (2)
  - OEDEMA PERIPHERAL [None]
  - THORACIC OUTLET SYNDROME [None]
